FAERS Safety Report 24669618 (Version 1)
Quarter: 2024Q4

REPORT INFORMATION
  Report Type: Spontaneous
  Country: US (occurrence: US)
  Receive Date: 20241127
  Receipt Date: 20241127
  Transmission Date: 20250114
  Serious: No
  Sender: ABBVIE
  Company Number: US-ABBVIE-6018709

PATIENT
  Sex: Female

DRUGS (3)
  1. BOTOX [Suspect]
     Active Substance: ONABOTULINUMTOXINA
     Indication: Product used for unknown indication
     Dosage: MINIMAL FROM THIS VIAL
     Route: 065
     Dates: start: 20241004, end: 20241004
  2. BOTOX [Suspect]
     Active Substance: ONABOTULINUMTOXINA
     Indication: Product used for unknown indication
     Dosage: MOST OF THE TREATMENT WAS DONE WITH THIS VIAL
     Route: 065
     Dates: start: 20241004, end: 20241004
  3. BOTOX [Suspect]
     Active Substance: ONABOTULINUMTOXINA
     Indication: Product used for unknown indication
     Route: 065
     Dates: start: 20241112, end: 20241112

REACTIONS (1)
  - Therapeutic product effect incomplete [Unknown]
